FAERS Safety Report 13276046 (Version 1)
Quarter: 2017Q1

REPORT INFORMATION
  Report Type: Report from Study
  Country: IT (occurrence: IT)
  Receive Date: 20170228
  Receipt Date: 20170228
  Transmission Date: 20170428
  Serious: Yes (Death, Other)
  Sender: FDA-Public Use
  Company Number: IT-ACCORD-048544

PATIENT
  Age: 64 Year
  Sex: Female

DRUGS (3)
  1. CYTARABINE/CYTARABINE HYDROCHLORIDE/CYTARABINE OCFOSFATE [Suspect]
     Active Substance: CYTARABINE
     Indication: CENTRAL NERVOUS SYSTEM LYMPHOMA
     Dosage: ARAC 1 G/M2, 1-HOUR INFUSION, TWICE A DAY?(EVERY 12 HOURS), DAYS 2 AND 3
  2. METHOTREXATE. [Suspect]
     Active Substance: METHOTREXATE
     Indication: CENTRAL NERVOUS SYSTEM LYMPHOMA
     Dosage: 3.5 G/M2 DAY 1;?THE FIRST 0.5 G/M2 OF MTX IN 15 MINUTES FOLLOWED BY A 3-HOUR INFUSION OF 3 G/M2
  3. THIOTEPA. [Suspect]
     Active Substance: THIOTEPA
     Indication: CENTRAL NERVOUS SYSTEM LYMPHOMA
     Dosage: 30 MG/M2 DAY 4; RECYCLING EVERY 3 WEEKS

REACTIONS (3)
  - Large intestine perforation [Fatal]
  - Peritonitis [Fatal]
  - Septic shock [Fatal]
